FAERS Safety Report 24693612 (Version 1)
Quarter: 2024Q4

REPORT INFORMATION
  Report Type: Spontaneous
  Country: ES (occurrence: ES)
  Receive Date: 20241204
  Receipt Date: 20241204
  Transmission Date: 20250115
  Serious: Yes (Hospitalization, Other)
  Sender: AUROBINDO
  Company Number: ES-AEMPS-1598799

PATIENT
  Age: 13 Year
  Sex: Male

DRUGS (2)
  1. FENTANYL [Interacting]
     Active Substance: FENTANYL
     Indication: Sedation
     Dosage: SP
     Route: 042
     Dates: start: 20230706, end: 20230712
  2. LINEZOLID [Interacting]
     Active Substance: LINEZOLID
     Indication: Product used for unknown indication
     Dosage: SP
     Route: 042
     Dates: start: 20230706, end: 20230712

REACTIONS (7)
  - Serotonin syndrome [Recovered/Resolved]
  - Agitation [Recovered/Resolved]
  - Hypertension [Recovered/Resolved]
  - Hyperreflexia [Recovered/Resolved]
  - Tachycardia [Recovered/Resolved]
  - Tremor [Recovered/Resolved]
  - Tachypnoea [Recovered/Resolved]

NARRATIVE: CASE EVENT DATE: 20230708
